FAERS Safety Report 4743351-3 (Version None)
Quarter: 2005Q3

REPORT INFORMATION
  Report Type: 
  Country: None (occurrence: None)
  Receive Date: 20050809
  Receipt Date: 20050727
  Transmission Date: 20060218
  Serious: Yes (Hospitalization)
  Sender: FDA-Public Use
  Company Number: HQWYE593829JUL05

PATIENT
  Age: 26 Year
  Sex: Female

DRUGS (5)
  1. EFFEXOR XR [Suspect]
     Dosage: 150 MG 1X PER 1 DAY
     Dates: start: 20050101
  2. STRATTERA [Concomitant]
  3. KLONOPIN [Concomitant]
  4. OXYCONTIN [Concomitant]
  5. VICODIN [Concomitant]

REACTIONS (5)
  - ABDOMINAL PAIN [None]
  - APPETITE DISORDER [None]
  - GALLBLADDER OPERATION [None]
  - INSOMNIA [None]
  - INTERVERTEBRAL DISC PROTRUSION [None]
